FAERS Safety Report 9266673 (Version 1)
Quarter: 2013Q2

REPORT INFORMATION
  Report Type: Report from Study
  Country: DE (occurrence: DE)
  Receive Date: 20130502
  Receipt Date: 20130502
  Transmission Date: 20140414
  Serious: Yes (Hospitalization)
  Sender: FDA-Public Use
  Company Number: DE-ASTELLAS-2013EU003909

PATIENT
  Age: 77 Year
  Sex: Male

DRUGS (11)
  1. ENZALUTAMIDE [Suspect]
     Indication: PROSTATE CANCER
     Dosage: 40 MG, QID
     Route: 048
     Dates: start: 20130105, end: 20130423
  2. CANDESARTAN [Concomitant]
     Dosage: UNK
     Route: 065
  3. AMLODIPIN                          /00972401/ [Concomitant]
     Dosage: UNK
     Route: 065
  4. BENALAPRIL [Concomitant]
     Dosage: UNK
     Route: 065
  5. BISOHEXAL [Concomitant]
     Dosage: UNK
     Route: 065
  6. HCT [Concomitant]
     Dosage: UNK
     Route: 065
  7. ALLOPURINOL [Concomitant]
     Dosage: UNK
     Route: 065
  8. PANTOZOL                           /01263204/ [Concomitant]
     Dosage: UNK
     Route: 065
  9. PREDNISOLON                        /00016201/ [Concomitant]
     Dosage: UNK
     Route: 065
  10. DOXEPIN [Concomitant]
     Dosage: UNK
     Route: 065
  11. DUROGESIC [Concomitant]
     Dosage: UNK UG, UNKNOWN/D
     Route: 065

REACTIONS (2)
  - Convulsion [Recovering/Resolving]
  - Troponin increased [Recovering/Resolving]
